FAERS Safety Report 23526951 (Version 9)
Quarter: 2025Q3

REPORT INFORMATION
  Report Type: Spontaneous
  Country: EU (occurrence: EU)
  Receive Date: 20240215
  Receipt Date: 20250812
  Transmission Date: 20251021
  Serious: Yes (Death, Hospitalization, Other)
  Sender: NOVARTIS
  Company Number: EU-BLUEFISH PHARMACEUTICALS AB-2023BF002326

PATIENT
  Age: 54 Year
  Sex: Female

DRUGS (45)
  1. CAPECITABINE [Suspect]
     Active Substance: CAPECITABINE
     Indication: Prophylaxis
     Route: 048
     Dates: start: 202111
  2. CAPECITABINE [Suspect]
     Active Substance: CAPECITABINE
     Indication: Breast cancer
  3. CAPECITABINE [Suspect]
     Active Substance: CAPECITABINE
     Indication: Chemotherapy
  4. CAPECITABINE [Suspect]
     Active Substance: CAPECITABINE
     Indication: Hormone therapy
  5. CAPECITABINE [Suspect]
     Active Substance: CAPECITABINE
     Indication: Neoplasm malignant
  6. CAPECITABINE [Suspect]
     Active Substance: CAPECITABINE
     Indication: Prophylaxis
  7. LETROZOLE [Suspect]
     Active Substance: LETROZOLE
     Indication: Hormone therapy
     Route: 065
  8. PACLITAXEL [Suspect]
     Active Substance: PACLITAXEL
     Indication: Breast cancer
     Route: 042
     Dates: start: 202012
  9. PACLITAXEL [Suspect]
     Active Substance: PACLITAXEL
     Indication: Neoplasm malignant
  10. PACLITAXEL [Suspect]
     Active Substance: PACLITAXEL
     Indication: Chemotherapy
  11. PACLITAXEL [Suspect]
     Active Substance: PACLITAXEL
     Indication: Hormone therapy
  12. PACLITAXEL [Suspect]
     Active Substance: PACLITAXEL
     Indication: Neoplasm malignant
  13. PACLITAXEL [Suspect]
     Active Substance: PACLITAXEL
     Indication: Prophylaxis
  14. TRASTUZUMAB [Suspect]
     Active Substance: TRASTUZUMAB
     Indication: Prophylaxis
     Route: 042
     Dates: start: 202012
  15. TRASTUZUMAB [Suspect]
     Active Substance: TRASTUZUMAB
     Indication: Breast cancer
     Route: 042
     Dates: start: 202111
  16. TRASTUZUMAB [Suspect]
     Active Substance: TRASTUZUMAB
     Indication: Prophylaxis
  17. TRASTUZUMAB [Suspect]
     Active Substance: TRASTUZUMAB
     Indication: Chemotherapy
  18. TRASTUZUMAB [Suspect]
     Active Substance: TRASTUZUMAB
     Indication: Hormone therapy
  19. TRASTUZUMAB [Suspect]
     Active Substance: TRASTUZUMAB
     Indication: Neoplasm malignant
  20. TRASTUZUMAB [Suspect]
     Active Substance: TRASTUZUMAB
     Indication: HER2 positive breast cancer
  21. TUCATINIB [Suspect]
     Active Substance: TUCATINIB
     Indication: Prophylaxis
     Route: 048
     Dates: start: 202111
  22. TUCATINIB [Suspect]
     Active Substance: TUCATINIB
     Indication: Breast cancer
  23. TUCATINIB [Suspect]
     Active Substance: TUCATINIB
     Indication: Prophylaxis
  24. TUCATINIB [Suspect]
     Active Substance: TUCATINIB
     Indication: Chemotherapy
  25. TUCATINIB [Suspect]
     Active Substance: TUCATINIB
     Indication: Hormone therapy
  26. TUCATINIB [Suspect]
     Active Substance: TUCATINIB
     Indication: Neoplasm malignant
  27. TAXOTERE [Suspect]
     Active Substance: DOCETAXEL
     Indication: Chemotherapy
     Route: 065
     Dates: start: 202012
  28. TAXOTERE [Suspect]
     Active Substance: DOCETAXEL
     Indication: Breast cancer
     Route: 065
  29. TAXOTERE [Suspect]
     Active Substance: DOCETAXEL
     Indication: Chemotherapy
  30. TAXOTERE [Suspect]
     Active Substance: DOCETAXEL
     Indication: Hormone therapy
  31. TAXOTERE [Suspect]
     Active Substance: DOCETAXEL
     Indication: Neoplasm malignant
  32. TAXOTERE [Suspect]
     Active Substance: DOCETAXEL
     Indication: Prophylaxis
  33. CYCLOPHOSPHAMIDE\EPIRUBICIN HYDROCHLORIDE\FLUOROURACIL [Suspect]
     Active Substance: CYCLOPHOSPHAMIDE\EPIRUBICIN HYDROCHLORIDE\FLUOROURACIL
     Indication: Chemotherapy
     Route: 042
  34. PERTUZUMAB [Suspect]
     Active Substance: PERTUZUMAB
     Indication: Neoplasm malignant
     Route: 042
     Dates: start: 202012
  35. PERTUZUMAB [Suspect]
     Active Substance: PERTUZUMAB
     Indication: Breast cancer
  36. PERTUZUMAB [Suspect]
     Active Substance: PERTUZUMAB
     Indication: Chemotherapy
  37. PERTUZUMAB [Suspect]
     Active Substance: PERTUZUMAB
     Indication: Hormone therapy
  38. PERTUZUMAB [Suspect]
     Active Substance: PERTUZUMAB
     Indication: Neoplasm malignant
  39. PERTUZUMAB [Suspect]
     Active Substance: PERTUZUMAB
     Indication: Prophylaxis
  40. DOCETAXEL [Suspect]
     Active Substance: DOCETAXEL
     Indication: Breast cancer
     Route: 065
  41. DOCETAXEL [Suspect]
     Active Substance: DOCETAXEL
     Indication: Chemotherapy
  42. DOCETAXEL [Suspect]
     Active Substance: DOCETAXEL
     Indication: Hormone therapy
  43. DOCETAXEL [Suspect]
     Active Substance: DOCETAXEL
     Indication: Neoplasm malignant
  44. DOCETAXEL [Suspect]
     Active Substance: DOCETAXEL
     Indication: Prophylaxis
  45. LETROZOLE [Concomitant]
     Active Substance: LETROZOLE
     Indication: Product used for unknown indication
     Route: 065

REACTIONS (21)
  - Metastases to adrenals [Fatal]
  - Metastases to meninges [Fatal]
  - Cerebral haematoma [Fatal]
  - Altered state of consciousness [Fatal]
  - Drug ineffective [Fatal]
  - Glossopharyngeal nerve paralysis [Fatal]
  - Hyperproteinaemia [Fatal]
  - Diplopia [Fatal]
  - Hypoglycaemia [Fatal]
  - Paraesthesia [Fatal]
  - Metastases to meninges [Fatal]
  - Epilepsy [Fatal]
  - Fall [Fatal]
  - Haematoma [Fatal]
  - Neurological decompensation [Fatal]
  - Dysarthria [Fatal]
  - Metastases to bone [Fatal]
  - Metastases to lymph nodes [Fatal]
  - Metastases to liver [Fatal]
  - Disease progression [Fatal]
  - Metastases to lung [Fatal]

NARRATIVE: CASE EVENT DATE: 20201001
